FAERS Safety Report 24930206 (Version 3)
Quarter: 2025Q2

REPORT INFORMATION
  Report Type: Spontaneous
  Country: IL (occurrence: IL)
  Receive Date: 20250205
  Receipt Date: 20250423
  Transmission Date: 20250717
  Serious: Yes (Death, Other)
  Sender: AMERICAN REGENT
  Company Number: IL-AMERICAN REGENT INC-2025000531

PATIENT
  Age: 85 Year
  Sex: Male

DRUGS (2)
  1. VENOFER [Suspect]
     Active Substance: IRON SUCROSE
     Indication: Product used for unknown indication
     Route: 065
     Dates: start: 202406
  2. VENOFER [Suspect]
     Active Substance: IRON SUCROSE
     Route: 042
     Dates: start: 20250106, end: 20250106

REACTIONS (4)
  - Loss of consciousness [Fatal]
  - Respiratory arrest [Fatal]
  - Cardiac arrest [Fatal]
  - Suspected product quality issue [Unknown]

NARRATIVE: CASE EVENT DATE: 20250101
